FAERS Safety Report 18751501 (Version 1)
Quarter: 2021Q1

REPORT INFORMATION
  Report Type: Spontaneous
  Country: US (occurrence: US)
  Receive Date: 20210118
  Receipt Date: 20210118
  Transmission Date: 20210419
  Serious: Yes (Hospitalization)
  Sender: FDA-Public Use
  Company Number: US-GW PHARMA-202010USGW03596

PATIENT

DRUGS (2)
  1. TOBRAMYCIN. [Concomitant]
     Active Substance: TOBRAMYCIN
     Indication: PRODUCT USED FOR UNKNOWN INDICATION
     Dosage: UNK
     Route: 065
  2. EPIDIOLEX [Suspect]
     Active Substance: CANNABIDIOL
     Indication: ILLNESS
     Dosage: 200 MILLIGRAM, BID (FIRST SHIPPED ON 06 AUG 2019)
     Route: 048
     Dates: start: 201908

REACTIONS (2)
  - Pneumothorax [Unknown]
  - Hip surgery [Unknown]

NARRATIVE: CASE EVENT DATE: 202010
